FAERS Safety Report 9877971 (Version 1)
Quarter: 2014Q1

REPORT INFORMATION
  Report Type: Spontaneous
  Country: US (occurrence: US)
  Receive Date: 20140206
  Receipt Date: 20140206
  Transmission Date: 20141002
  Serious: No
  Sender: FDA-Public Use
  Company Number: US-009507513-1402USA001041

PATIENT
  Age: 22 Year
  Sex: Female
  Weight: 55.33 kg

DRUGS (1)
  1. NUVARING [Suspect]
     Indication: CONTRACEPTION
     Dosage: UNK, FREQUENCY: 1 WEEK
     Route: 067
     Dates: start: 20140122

REACTIONS (3)
  - Chest pain [Unknown]
  - Dizziness [Unknown]
  - Malaise [Unknown]
